FAERS Safety Report 4354432-0 (Version None)
Quarter: 2004Q2

REPORT INFORMATION
  Report Type: 
  Country: None (occurrence: None)
  Receive Date: 20040503
  Receipt Date: 20040212
  Transmission Date: 20050107
  Serious: Yes (Hospitalization)
  Sender: FDA-Public Use
  Company Number: PHEH2003US11142

PATIENT
  Age: 69 Year
  Sex: Male

DRUGS (9)
  1. LOTREL [Suspect]
     Indication: HYPERTENSION
     Dosage: 5 MG AMLOD/10 MG BENAZ QD
     Dates: start: 20030401, end: 20031204
  2. INSULIN [Concomitant]
  3. LUPRON [Concomitant]
  4. ECOTRIN [Concomitant]
  5. AVANDIA [Concomitant]
  6. CELEBREX [Concomitant]
  7. NEURONTIN [Concomitant]
  8. LIPITOR [Concomitant]
  9. VIAGRA [Concomitant]

REACTIONS (2)
  - ANGIONEUROTIC OEDEMA [None]
  - HYPERSENSITIVITY [None]
